FAERS Safety Report 5870865-5 (Version None)
Quarter: 2008Q3

REPORT INFORMATION
  Report Type: 
  Country: None (occurrence: None)
  Receive Date: 20080904
  Receipt Date: 20080902
  Transmission Date: 20090109
  Serious: Yes (Other)
  Sender: FDA-Public Use
  Company Number: US-BAYER-200812391BCC

PATIENT
  Age: 21 Year
  Sex: Female
  Weight: 107 kg

DRUGS (1)
  1. ASPIRIN [Suspect]
     Indication: MIGRAINE
     Route: 048
     Dates: start: 19780101, end: 19980101

REACTIONS (4)
  - ABDOMINAL PAIN UPPER [None]
  - DRUG EXPOSURE DURING PREGNANCY [None]
  - GASTRIC ULCER HAEMORRHAGE [None]
  - HAEMATEMESIS [None]
